FAERS Safety Report 17750274 (Version 1)
Quarter: 2020Q2

REPORT INFORMATION
  Report Type: Spontaneous
  Country: US (occurrence: US)
  Receive Date: 20200505
  Receipt Date: 20200505
  Transmission Date: 20200714
  Serious: No
  Sender: FDA-Public Use
  Company Number: None

PATIENT
  Age: 27 Month
  Sex: Female
  Weight: 11.48 kg

DRUGS (5)
  1. EUCRISA [Suspect]
     Active Substance: CRISABOROLE
     Indication: ECZEMA
     Dosage: ?          QUANTITY:60 GRAMS;?
     Route: 061
  2. TRIAMCINOLONE 0.1% [Concomitant]
     Active Substance: TRIAMCINOLONE
  3. ZYTEC [Concomitant]
  4. CHILDREN^S MULTIVITAMIN [Concomitant]
  5. AQUAPHOR FOR SKIN [Concomitant]

REACTIONS (7)
  - Rash pruritic [None]
  - Condition aggravated [None]
  - Eczema [None]
  - Skin abrasion [None]
  - Rash [None]
  - Haemorrhage [None]
  - Product substitution issue [None]

NARRATIVE: CASE EVENT DATE: 20200427
